FAERS Safety Report 19292836 (Version 1)
Quarter: 2021Q2

REPORT INFORMATION
  Report Type: Spontaneous
  Country: DE (occurrence: DE)
  Receive Date: 20210524
  Receipt Date: 20210524
  Transmission Date: 20210717
  Serious: Yes (Hospitalization, Other)
  Sender: FDA-Public Use
  Company Number: DE-EMD SERONO-E2B_90083603

PATIENT
  Age: 31 Year
  Sex: Female

DRUGS (3)
  1. OVALEAP [Suspect]
     Active Substance: FOLLITROPIN ALFA
     Indication: ASSISTED REPRODUCTIVE TECHNOLOGY
  2. TRIPTOFEM [Suspect]
     Active Substance: TRIPTORELIN ACETATE
     Indication: ASSISTED REPRODUCTIVE TECHNOLOGY
  3. CETROTIDE [Suspect]
     Active Substance: CETRORELIX ACETATE
     Indication: ASSISTED REPRODUCTIVE TECHNOLOGY

REACTIONS (3)
  - Ovarian hyperstimulation syndrome [Unknown]
  - Intra-abdominal haematoma [Unknown]
  - Pain [Unknown]

NARRATIVE: CASE EVENT DATE: 20210506
